FAERS Safety Report 8008814-6 (Version None)
Quarter: 2011Q4

REPORT INFORMATION
  Report Type: 
  Country: None (occurrence: None)
  Receive Date: 20111227
  Receipt Date: 20111214
  Transmission Date: 20120403
  Serious: Yes (Other)
  Sender: FDA-Public Use
  Company Number: PHHY2011TR110066

PATIENT
  Sex: Male

DRUGS (3)
  1. LEVETIRACETAM [Concomitant]
     Dosage: 2500 MG/DAY
  2. EXELON [Suspect]
     Dosage: 9.6 MG\24H
     Route: 062
  3. TRILEPTAL [Concomitant]
     Dosage: 600 MG/DAY

REACTIONS (3)
  - DELIRIUM [None]
  - SLEEP DISORDER [None]
  - PARANOIA [None]
